FAERS Safety Report 4364377-8 (Version None)
Quarter: 2004Q2

REPORT INFORMATION
  Report Type: 
  Country: None (occurrence: None)
  Receive Date: 20040513
  Receipt Date: 20030911
  Transmission Date: 20050107
  Serious: Yes (Hospitalization)
  Sender: FDA-Public Use
  Company Number: 2003176496US

PATIENT
  Age: 32 Year
  Sex: Female

DRUGS (2)
  1. PROVERA [Suspect]
     Dosage: 5 MG, ORAL
     Route: 048
  2. CORTICOSTEROID NOS (CORTICOSTEROID NOS) [Suspect]

REACTIONS (1)
  - HYPERSENSITIVITY [None]
